FAERS Safety Report 24173595 (Version 1)
Quarter: 2024Q3

REPORT INFORMATION
  Report Type: Spontaneous
  Country: NL (occurrence: NL)
  Receive Date: 20240805
  Receipt Date: 20240805
  Transmission Date: 20241017
  Serious: Yes (Other)
  Sender: IPCA
  Company Number: NL-IPCA LABORATORIES LIMITED-IPC-2024-NL-001954

PATIENT

DRUGS (1)
  1. WARFARIN [Suspect]
     Active Substance: WARFARIN
     Indication: Mass
     Dosage: UNK
     Route: 065

REACTIONS (1)
  - Haemorrhagic transformation stroke [Unknown]
